FAERS Safety Report 20622502 (Version 1)
Quarter: 2022Q1

REPORT INFORMATION
  Report Type: Spontaneous
  Country: US (occurrence: None)
  Receive Date: 20220322
  Receipt Date: 20220322
  Transmission Date: 20220423
  Serious: Yes (Hospitalization)
  Sender: FDA-Public Use
  Company Number: None

PATIENT
  Age: 34 Year
  Sex: Male
  Weight: 96.75 kg

DRUGS (1)
  1. INVEGA TRINZA [Suspect]
     Active Substance: PALIPERIDONE PALMITATE
     Indication: Schizoaffective disorder
     Dosage: OTHER QUANTITY : 1 INJECTION(S);?OTHER FREQUENCY : EVERY 3 MONTHS;?
     Route: 030

REACTIONS (8)
  - Depression [None]
  - Suicidal ideation [None]
  - Cerebral disorder [None]
  - Anxiety [None]
  - Bradykinesia [None]
  - Bradyphrenia [None]
  - Aggression [None]
  - Akathisia [None]

NARRATIVE: CASE EVENT DATE: 20220223
